FAERS Safety Report 7402422-3 (Version None)
Quarter: 2011Q2

REPORT INFORMATION
  Report Type: 
  Country: None (occurrence: None)
  Receive Date: 20110408
  Receipt Date: 20110404
  Transmission Date: 20111010
  Serious: Yes (Hospitalization, Other)
  Sender: FDA-Public Use
  Company Number: FR-BRISTOL-MYERS SQUIBB COMPANY-15302532

PATIENT
  Age: 78 Year
  Sex: Male

DRUGS (11)
  1. TENORMIN [Concomitant]
     Dosage: ALSO TAKEN FROM 03SEP2010
     Dates: start: 20050101
  2. REYATAZ [Concomitant]
     Dates: start: 20090101
  3. LASIX [Concomitant]
     Dosage: ALSO TAKEN FROM 03SEP2010
     Dates: start: 20050101
  4. LEVOTHYROX [Concomitant]
     Dosage: ALSO TAKEN FROM 03SEP2010
     Dates: start: 20050101
  5. APROVEL TABS 150 MG [Suspect]
     Route: 048
     Dates: start: 20100722, end: 20100829
  6. ZYLORIC [Suspect]
     Route: 048
     Dates: start: 20100722, end: 20100826
  7. INSULIN [Concomitant]
     Dosage: ALSO TAKEN FROM 03SEP2010
  8. EPIVIR [Concomitant]
     Dosage: ALSO TAKEN FROM 03SEP2010
     Dates: start: 20090101
  9. TAHOR [Concomitant]
     Dosage: ALSO TAKEN FROM 03SEP2010
     Dates: start: 20050101
  10. ISENTRESS [Concomitant]
     Dosage: ALSO TAKEN FROM 03SEP2010
     Dates: start: 20090101
  11. LERCAN [Concomitant]
     Dosage: ALSO TAKEN FROM 03SEP2010
     Dates: start: 20090101

REACTIONS (5)
  - AGRANULOCYTOSIS [None]
  - INTERSTITIAL LUNG DISEASE [None]
  - NEUTROPENIA [None]
  - RENAL FAILURE [None]
  - DRUG RASH WITH EOSINOPHILIA AND SYSTEMIC SYMPTOMS [None]
